FAERS Safety Report 5714565-0 (Version None)
Quarter: 2008Q2

REPORT INFORMATION
  Report Type: 
  Country: None (occurrence: None)
  Receive Date: 20080421
  Receipt Date: 20080408
  Transmission Date: 20081010
  Serious: Yes (Life-Threatening)
  Sender: FDA-Public Use
  Company Number: 02100-EUR-08-0018

PATIENT
  Age: 64 Year
  Sex: Male

DRUGS (8)
  1. PLETAL [Suspect]
     Indication: PERIPHERAL ARTERIAL OCCLUSIVE DISEASE
     Dosage: 100 MG, BID
     Route: 048
     Dates: start: 20070701, end: 20071101
  2. GLIMEPIRIDE [Concomitant]
  3. ACETYLSALICYLIC ACID SRT [Concomitant]
  4. BISOPROLOL HEMIFUMARATE (BISOPROLOL HEMIFUMARATE) [Concomitant]
  5. HYDROCHLOROTHIAZIDE [Concomitant]
  6. LOSARTAN POTASSIUM [Concomitant]
  7. EZETIMIBE [Concomitant]
  8. SIMVASTATIN [Concomitant]

REACTIONS (4)
  - BUNDLE BRANCH BLOCK LEFT [None]
  - BUNDLE BRANCH BLOCK RIGHT [None]
  - CARDIAC FAILURE [None]
  - CARDIOGENIC SHOCK [None]
